FAERS Safety Report 25486271 (Version 1)
Quarter: 2025Q2

REPORT INFORMATION
  Report Type: Spontaneous
  Country: CN (occurrence: CN)
  Receive Date: 20250626
  Receipt Date: 20250626
  Transmission Date: 20250717
  Serious: Yes (Other)
  Sender: ELI LILLY AND COMPANY
  Company Number: CN-Merck Healthcare KGaA-2025031778

PATIENT
  Age: 62 Year
  Sex: Male
  Weight: 69 kg

DRUGS (6)
  1. ERBITUX [Suspect]
     Active Substance: CETUXIMAB
     Indication: Oral cavity cancer metastatic
     Route: 041
     Dates: start: 20250219, end: 20250219
  2. PACLITAXEL [Suspect]
     Active Substance: PACLITAXEL
     Indication: Oral cavity cancer metastatic
     Dosage: 0.4 G, DAILY
     Route: 041
     Dates: start: 20250218, end: 20250218
  3. CARBOPLATIN [Suspect]
     Active Substance: CARBOPLATIN
     Indication: Oral cavity cancer metastatic
     Dosage: 0.6 G, DAILY
     Route: 041
     Dates: start: 20250218, end: 20250218
  4. SODIUM CHLORIDE [Concomitant]
     Active Substance: SODIUM CHLORIDE
     Indication: Medication dilution
     Dosage: 320 ML, DAILY
     Route: 041
     Dates: start: 20250219, end: 20250219
  5. SODIUM CHLORIDE [Concomitant]
     Active Substance: SODIUM CHLORIDE
     Dosage: 80 ML, DAILY
     Route: 041
     Dates: start: 20250218, end: 20250218
  6. DEXTROSE [Concomitant]
     Active Substance: DEXTROSE MONOHYDRATE
     Indication: Medication dilution
     Dosage: 500 ML, DAILY
     Route: 041
     Dates: start: 20250218, end: 20250218

REACTIONS (2)
  - Neutrophil count decreased [Recovered/Resolved]
  - White blood cell count decreased [Recovered/Resolved]

NARRATIVE: CASE EVENT DATE: 20250305
